FAERS Safety Report 12725606 (Version 1)
Quarter: 2016Q3

REPORT INFORMATION
  Report Type: Spontaneous
  Country: US (occurrence: US)
  Receive Date: 20160906
  Receipt Date: 20160906
  Transmission Date: 20161109
  Serious: Yes (Hospitalization)
  Sender: FDA-Public Use
  Company Number: None

PATIENT
  Age: 31 Year
  Sex: Male
  Weight: 94.5 kg

DRUGS (3)
  1. KEPPRA [Concomitant]
     Active Substance: LEVETIRACETAM
  2. OXCARBAZAPINE [Suspect]
     Active Substance: OXCARBAZEPINE
     Indication: EPILEPSY
     Dosage: 3 PILLS
     Route: 048
  3. OXCABAZEPINE [Concomitant]
     Active Substance: OXCARBAZEPINE

REACTIONS (3)
  - Anticonvulsant drug level below therapeutic [None]
  - Seizure [None]
  - Product quality issue [None]

NARRATIVE: CASE EVENT DATE: 20160906
